FAERS Safety Report 13647344 (Version 1)
Quarter: 2017Q2

REPORT INFORMATION
  Report Type: Spontaneous
  Country: FR (occurrence: FR)
  Receive Date: 20170613
  Receipt Date: 20170613
  Transmission Date: 20170830
  Serious: Yes (Hospitalization)
  Sender: FDA-Public Use
  Company Number: FR-TEVA-775740ROM

PATIENT
  Age: 60 Year
  Sex: Female

DRUGS (6)
  1. AMOXICILLINE / ACIDE CLAVULANIQUE MYLAN [Suspect]
     Active Substance: AMOXICILLIN\CLAVULANIC ACID
     Indication: BRONCHITIS
     Dosage: 3 GRAM DAILY;
     Route: 048
     Dates: start: 20150103, end: 20150107
  2. BUDESONIDE TEVA 1MG/2 ML [Suspect]
     Active Substance: BUDESONIDE
     Indication: BRONCHITIS
     Dosage: 1 DOSAGE FORMS DAILY; FORM OF ADMINISTRATION:  SUSPENSION FOR INHALATION
     Dates: start: 20150103, end: 20150107
  3. ZOLPIDEM [Concomitant]
     Active Substance: ZOLPIDEM\ZOLPIDEM TARTRATE
     Route: 048
     Dates: start: 20150103, end: 20170116
  4. DOLIPRANE [Suspect]
     Active Substance: ACETAMINOPHEN
     Indication: BRONCHITIS
     Dosage: 1 DOSAGE FORMS DAILY;
     Route: 048
     Dates: start: 20150103
  5. CELESTENE 2 MG [Suspect]
     Active Substance: BETAMETHASONE
     Indication: BRONCHITIS
     Dosage: 1 DOSAGE FORMS DAILY;
     Route: 048
     Dates: start: 20150103, end: 20150106
  6. ZOLPIDEM [Concomitant]
     Active Substance: ZOLPIDEM\ZOLPIDEM TARTRATE
     Route: 048
     Dates: end: 201401

REACTIONS (5)
  - Jaundice [Recovered/Resolved]
  - Gastrointestinal disorder [Recovered/Resolved]
  - Hepatitis cholestatic [Recovered/Resolved]
  - Pruritus [Recovered/Resolved]
  - Hepatitis [Recovered/Resolved]

NARRATIVE: CASE EVENT DATE: 20150130
